FAERS Safety Report 5728792-X (Version None)
Quarter: 2008Q2

REPORT INFORMATION
  Report Type: 
  Country: None (occurrence: None)
  Receive Date: 20080506
  Receipt Date: 20080502
  Transmission Date: 20081010
  Serious: Yes (Death)
  Sender: FDA-Public Use
  Company Number: CA-JNJFOC-20080500375

PATIENT
  Age: 84 Year
  Sex: Male
  Weight: 82.1 kg

DRUGS (14)
  1. LEVAQUIN [Suspect]
     Indication: PNEUMONIA
     Route: 048
     Dates: start: 20080425
  2. ASPIRIN [Concomitant]
     Route: 048
  3. FERROUS SULFATE TAB [Concomitant]
     Route: 065
  4. PLAVIX [Concomitant]
     Route: 048
  5. SENOKOT [Concomitant]
     Route: 065
  6. APO-RAMIPRIL [Concomitant]
     Indication: DRUG USE FOR UNKNOWN INDICATION
     Route: 048
  7. APO-FUROSEMIDE [Concomitant]
     Route: 065
  8. SOFLAX [Concomitant]
     Route: 065
  9. NITRO-DUR [Concomitant]
     Route: 065
  10. NOVO-METOPROL [Concomitant]
     Route: 065
  11. ACETAMINOPHEN [Concomitant]
     Route: 065
  12. LIPITOR [Concomitant]
     Route: 065
  13. NITROLINGUAL PUMPSPRAY [Concomitant]
     Indication: CHEST DISCOMFORT
     Route: 065
  14. APO-GLICLAZIDE [Concomitant]
     Route: 065

REACTIONS (1)
  - CARDIAC DISORDER [None]
